FAERS Safety Report 6539493-2 (Version None)
Quarter: 2010Q1

REPORT INFORMATION
  Report Type: 
  Country: None (occurrence: None)
  Receive Date: 20100115
  Receipt Date: 20100113
  Transmission Date: 20100710
  Serious: Yes (Hospitalization)
  Sender: FDA-Public Use
  Company Number: A0839214A

PATIENT
  Age: 54 Year
  Sex: Male

DRUGS (5)
  1. ADVAIR DISKUS 100/50 [Suspect]
     Indication: ASTHMA
     Dosage: 1PUFF TWICE PER DAY
     Route: 055
     Dates: start: 20010101
  2. ANDROGEL [Concomitant]
  3. BENICAR [Concomitant]
  4. TRICOR [Concomitant]
  5. ATENOLOL [Concomitant]

REACTIONS (6)
  - BONE DENSITY DECREASED [None]
  - KNEE ARTHROPLASTY [None]
  - MOBILITY DECREASED [None]
  - TOOTH DISORDER [None]
  - TOOTH EXTRACTION [None]
  - TOOTH FRACTURE [None]
